FAERS Safety Report 9785871 (Version 2)
Quarter: 2014Q1

REPORT INFORMATION
  Report Type: Spontaneous
  Country: US (occurrence: US)
  Receive Date: 20131227
  Receipt Date: 20140117
  Transmission Date: 20141002
  Serious: No
  Sender: FDA-Public Use
  Company Number: US-BAYER-2013-157182

PATIENT
  Age: 20 Year
  Sex: Female

DRUGS (2)
  1. YASMIN [Suspect]
     Dosage: UNK
     Route: 048
     Dates: start: 2012, end: 2012
  2. MIRENA [Suspect]
     Indication: CONTRACEPTION
     Dosage: 20 MCG/24HR, CONT
     Route: 015
     Dates: start: 201304

REACTIONS (12)
  - Depression [None]
  - Emotional distress [None]
  - Emotional distress [None]
  - Feeling abnormal [None]
  - Mood altered [None]
  - Hypertension [None]
  - Insomnia [None]
  - Dyspnoea [None]
  - Hypoaesthesia [None]
  - Crying [None]
  - Drug hypersensitivity [None]
  - Hormone level abnormal [None]
